FAERS Safety Report 21257432 (Version 5)
Quarter: 2022Q4

REPORT INFORMATION
  Report Type: Spontaneous
  Country: DE (occurrence: DE)
  Receive Date: 20220826
  Receipt Date: 20221012
  Transmission Date: 20230112
  Serious: Yes (Hospitalization)
  Sender: FDA-Public Use
  Company Number: DE-BoehringerIngelheim-2022-BI-186560

PATIENT
  Age: 53 Year
  Sex: Female
  Weight: 77.3 kg

DRUGS (2)
  1. DOCETAXEL [Suspect]
     Active Substance: DOCETAXEL
     Indication: Lung adenocarcinoma
     Dosage: 75 MILLIGRAM/SQ. METER, ONCE A DAY (LIQUID 75 MG/ M2 BSA)
     Route: 042
     Dates: start: 20220704
  2. NINTEDANIB [Suspect]
     Active Substance: NINTEDANIB
     Indication: Lung adenocarcinoma
     Dosage: 200 MILLIGRAM, TWO TIMES A DAY
     Route: 048
     Dates: start: 20220705

REACTIONS (4)
  - White blood cell count decreased [Recovered/Resolved]
  - Infection [Recovered/Resolved]
  - Fatigue [Recovered/Resolved]
  - Headache [Unknown]

NARRATIVE: CASE EVENT DATE: 20220708
